FAERS Safety Report 9782169 (Version 3)
Quarter: 2021Q4

REPORT INFORMATION
  Report Type: Other
  Country: US (occurrence: None)
  Receive Date: 20131226
  Receipt Date: 20211111
  Transmission Date: 20220303
  Serious: Yes (Other)
  Sender: FDA-Public Use
  Company Number: US-ROCHE-1289685

PATIENT
  Sex: Female

DRUGS (7)
  1. TRASTUZUMAB [Suspect]
     Active Substance: TRASTUZUMAB
     Indication: HER2 positive breast cancer
     Dosage: LOAD
     Route: 042
  2. TRASTUZUMAB [Suspect]
     Active Substance: TRASTUZUMAB
     Route: 042
  3. LAPATINIB [Suspect]
     Active Substance: LAPATINIB
     Indication: HER2 positive breast cancer
     Dosage: LAPATINIB GROUP : 1250  MG OR COMBINATION GROUP: 750 MG
     Route: 048
  4. DOXORUBICIN [Suspect]
     Active Substance: DOXORUBICIN
     Indication: HER2 positive breast cancer
     Dosage: ON DAY 1
     Route: 042
  5. CYCLOPHOSPHAMIDE [Suspect]
     Active Substance: CYCLOPHOSPHAMIDE
     Indication: HER2 positive breast cancer
     Dosage: ON DAY 1
     Route: 042
  6. PACLITAXEL [Suspect]
     Active Substance: PACLITAXEL
     Indication: HER2 positive breast cancer
     Dosage: FOUR CYCLES OF WEEKLY ON DAYS 1, 8, AND 15
     Route: 042
  7. PACLITAXEL [Suspect]
     Active Substance: PACLITAXEL
     Route: 042

REACTIONS (15)
  - Neutropenia [Unknown]
  - Cardiac failure congestive [Unknown]
  - Diarrhoea [Unknown]
  - Febrile neutropenia [Unknown]
  - Alanine aminotransferase abnormal [Unknown]
  - Nausea [Unknown]
  - Vomiting [Unknown]
  - Haemoglobin abnormal [Unknown]
  - Left ventricular dysfunction [Unknown]
  - Fatigue [Unknown]
  - Dehydration [Unknown]
  - Mucosal inflammation [Unknown]
  - Peripheral sensory neuropathy [Unknown]
  - Dyspnoea [Unknown]
  - Rash [Unknown]
